FAERS Safety Report 4911407-8 (Version None)
Quarter: 2006Q1

REPORT INFORMATION
  Report Type: 
  Country: None (occurrence: None)
  Receive Date: 20060213
  Receipt Date: 20060131
  Transmission Date: 20060701
  Serious: Yes (Hospitalization, Other)
  Sender: FDA-Public Use
  Company Number: 2006016010

PATIENT
  Sex: Female
  Weight: 63.5036 kg

DRUGS (4)
  1. NORVASC [Suspect]
     Indication: HYPERTENSION
     Dosage: 10 MG (10 MG,QD INTERVAL: EVERY DAY)
  2. LIPITOR [Suspect]
     Indication: BLOOD CHOLESTEROL INCREASED
     Dosage: 20 MG (20 MG,QD INTERVAL: EVERY DAY)
  3. GERITOL (VITAMINS NOS) [Concomitant]
  4. ZOLOFT [Concomitant]

REACTIONS (3)
  - ASTHENIA [None]
  - MYOCARDIAL INFARCTION [None]
  - OPTIC ISCHAEMIC NEUROPATHY [None]
